FAERS Safety Report 17256111 (Version 5)
Quarter: 2020Q4

REPORT INFORMATION
  Report Type: Report from Study
  Country: US (occurrence: US)
  Receive Date: 20200110
  Receipt Date: 20201026
  Transmission Date: 20210113
  Serious: Yes (Hospitalization, Other)
  Sender: FDA-Public Use
  Company Number: US-VIIV HEALTHCARE LIMITED-US2019GSK230836

PATIENT
  Age: 44 Year
  Sex: Male
  Weight: 51.1 kg

DRUGS (5)
  1. AMLODIPINE [Concomitant]
     Active Substance: AMLODIPINE BESYLATE
     Indication: HYPERTENSION
     Dosage: 5 MG, QD
     Route: 048
     Dates: start: 20191205
  2. CEFEPIME [Concomitant]
     Active Substance: CEFEPIME HYDROCHLORIDE
     Indication: PYELONEPHRITIS ACUTE
     Dosage: 2 G
     Route: 042
     Dates: start: 20191205, end: 20191205
  3. CEFDINIR. [Concomitant]
     Active Substance: CEFDINIR
     Indication: PYELONEPHRITIS ACUTE
     Dosage: 300 MG 2/DAY X 7 DAYS
     Route: 048
     Dates: start: 20191209, end: 20191216
  4. EMTRICITABINE+TENOFOVIR ALAFENAMIDE [Suspect]
     Active Substance: EMTRICITABINE\TENOFOVIR ALAFENAMIDE FUMARATE
     Indication: HIV INFECTION
     Dosage: 1 DF, QD (200/25 MG)
     Route: 048
     Dates: start: 20191121
  5. DOLUTEGRAVIR [Suspect]
     Active Substance: DOLUTEGRAVIR
     Indication: HIV INFECTION
     Dosage: 50 MG, QD
     Route: 048
     Dates: start: 20191121

REACTIONS (1)
  - Mastitis [Recovered/Resolved]

NARRATIVE: CASE EVENT DATE: 20191213
